FAERS Safety Report 19491114 (Version 1)
Quarter: 2021Q3

REPORT INFORMATION
  Report Type: Spontaneous
  Country: DE (occurrence: DE)
  Receive Date: 20210705
  Receipt Date: 20210705
  Transmission Date: 20211014
  Serious: Yes (Hospitalization)
  Sender: FDA-Public Use
  Company Number: DE-TEVA-2021-DE-1928361

PATIENT
  Age: 71 Year
  Sex: Male
  Weight: 90.5 kg

DRUGS (14)
  1. OXALIPLATIN. [Suspect]
     Active Substance: OXALIPLATIN
     Dosage: ACCORDING TO THE SCHEME, INJECTION / INFUSION SOLUTION
     Route: 042
  2. TORASEMID [Concomitant]
     Active Substance: TORSEMIDE
     Dosage: 10 MILLIGRAM DAILY; 1?1?0?0
     Route: 048
  3. FLUOROURACIL. [Suspect]
     Active Substance: FLUOROURACIL
     Dosage: ACCORDING TO THE SCHEME, INJECTION / INFUSION SOLUTION
     Route: 042
  4. PANTOPRAZOL [Concomitant]
     Active Substance: PANTOPRAZOLE SODIUM
     Dosage: 80 MILLIGRAM DAILY; 1?0?1?0
     Route: 048
  5. FOLINSAURE [Suspect]
     Active Substance: LEUCOVORIN
     Dosage: ACCORDING TO THE SCHEME, INJECTION / INFUSION SOLUTION
     Route: 042
  6. KREON 25000E. [Concomitant]
     Dosage: 75000 IU (INTERNATIONAL UNIT) DAILY; 1?1?1?0, CAPSULES
     Route: 048
  7. INSULIN GLARGIN [Concomitant]
     Active Substance: INSULIN GLARGINE
     Dosage: 14 IU (INTERNATIONAL UNIT) DAILY; 0?0?0?1, SOLUTION FOR INJECTION / INFUSION
     Route: 058
  8. METOPROLOL. [Concomitant]
     Active Substance: METOPROLOL
     Dosage: 190 MILLIGRAM DAILY; 1?0?1?0, SUSTAINED?RELEASE TABLETS
     Route: 048
  9. SYMBICORT 160MIKROGRAMM/4,5MIKROGRAMM [Concomitant]
     Dosage: 2 DOSAGE FORMS DAILY; 160 | 4.5 UG, 1?0?1?0, METERED DOSE INHALER
     Route: 055
  10. PIPAMPERON [Concomitant]
     Active Substance: PIPAMPERONE HYDROCHLORIDE
     Dosage: 40 MG, IF NECESSARY, JUICE
     Route: 048
  11. IRINOTECAN [Suspect]
     Active Substance: IRINOTECAN
     Dosage: ACCORDING TO THE SCHEME
     Route: 042
  12. PARACETAMOL [Concomitant]
     Active Substance: ACETAMINOPHEN
     Dosage: 1500 MILLIGRAM DAILY; 1?1?1?0
     Route: 048
  13. METAMIZOL [Concomitant]
     Active Substance: METAMIZOLE SODIUM
     Dosage: 1000 MILLIGRAM DAILY; 1?0?0?1
     Route: 048
  14. L?THYROXIN 125?1A PHARMA [Concomitant]
     Dosage: 125 MICROGRAM DAILY; 1?0?0?0
     Route: 048

REACTIONS (3)
  - Abdominal distension [Recovering/Resolving]
  - Chills [Recovering/Resolving]
  - Pyrexia [Recovering/Resolving]
